FAERS Safety Report 23934815 (Version 2)
Quarter: 2024Q2

REPORT INFORMATION
  Report Type: Report from Study
  Country: CA (occurrence: CA)
  Receive Date: 20240604
  Receipt Date: 20240619
  Transmission Date: 20240717
  Serious: Yes (Other)
  Sender: FDA-Public Use
  Company Number: CA-JAMP PHARMA CORPORATION-2023-JAM-CA-00028

PATIENT
  Age: 31 Year
  Sex: Female

DRUGS (5)
  1. SIMLANDI [Suspect]
     Active Substance: ADALIMUMAB-RYVK
     Indication: Crohn^s disease
     Dosage: 40 MG /1 WEEK
     Route: 058
     Dates: start: 20221214
  2. SIMLANDI [Suspect]
     Active Substance: ADALIMUMAB-RYVK
     Indication: Crohn^s disease
     Dosage: 40 MG, EVERY 2 WEEKS
     Route: 058
  3. SIMLANDI [Suspect]
     Active Substance: ADALIMUMAB-RYVK
     Indication: Crohn^s disease
     Dosage: 40 MG /1 WEEK
     Route: 058
  4. SIMLANDI [Suspect]
     Active Substance: ADALIMUMAB-RYVK
     Indication: Crohn^s disease
     Dosage: 80 MG /1 WEEK
     Route: 058
  5. SIMLANDI [Suspect]
     Active Substance: ADALIMUMAB-RYVK
     Indication: Crohn^s disease
     Dosage: UNK, EVERY 14 DAYS
     Route: 058

REACTIONS (6)
  - Crohn^s disease [Unknown]
  - Gastroenteritis viral [Unknown]
  - Exposure during pregnancy [Recovered/Resolved]
  - Injection site swelling [Unknown]
  - Injection site pruritus [Unknown]
  - Inflammation [Not Recovered/Not Resolved]
